FAERS Safety Report 7333029-4 (Version None)
Quarter: 2011Q1

REPORT INFORMATION
  Report Type: 
  Country: None (occurrence: None)
  Receive Date: 20110304
  Receipt Date: 20110228
  Transmission Date: 20110831
  Serious: Yes (Hospitalization)
  Sender: FDA-Public Use
  Company Number: US-PFIZER INC-2010149432

PATIENT
  Sex: Male
  Weight: 103 kg

DRUGS (10)
  1. TYGACIL [Suspect]
     Indication: CELLULITIS
     Dosage: 50 MG, 2X/DAY
     Route: 042
     Dates: start: 20101027, end: 20101110
  2. NOVOLOG [Concomitant]
     Dosage: UNK
  3. NEXIUM [Concomitant]
     Dosage: UNK
  4. DILAUDID [Concomitant]
     Dosage: UNK
  5. NARCAN [Concomitant]
     Dosage: UNK
  6. ZOFRAN [Concomitant]
     Dosage: UNK
  7. DULCOLAX [Concomitant]
     Dosage: UNK
  8. SYNTHROID [Concomitant]
     Dosage: UNK
  9. BENADRYL [Concomitant]
     Dosage: UNK
  10. ZESTORETIC [Concomitant]
     Dosage: UNK

REACTIONS (6)
  - ABDOMINAL PAIN [None]
  - BLOOD UREA INCREASED [None]
  - PANCREATITIS ACUTE [None]
  - RED BLOOD CELL SEDIMENTATION RATE INCREASED [None]
  - BLOOD CREATININE INCREASED [None]
  - LIPASE INCREASED [None]
